FAERS Safety Report 6553476-8 (Version None)
Quarter: 2010Q1

REPORT INFORMATION
  Report Type: 
  Country: None (occurrence: None)
  Receive Date: 20100122
  Receipt Date: 20100111
  Transmission Date: 20100710
  Serious: Yes (Other)
  Sender: FDA-Public Use
  Company Number: 230320J10USA

PATIENT
  Age: 62 Year
  Sex: Female
  Weight: 82 kg

DRUGS (5)
  1. REBIF [Suspect]
     Indication: MULTIPLE SCLEROSIS
     Dosage: 44 MCG, 3 IN 1 WEEKS, SUBCUTANEOUS
     Route: 058
     Dates: start: 20090520
  2. CYMBALTA [Concomitant]
  3. DIOVAN HCT (CO-DIOVAN) [Concomitant]
  4. CAPADEX (APOREX) [Concomitant]
  5. TRAVATAN Z (TRAVOPROST) [Concomitant]

REACTIONS (11)
  - BALANCE DISORDER [None]
  - DYSPNOEA [None]
  - FATIGUE [None]
  - INFLAMMATION [None]
  - INFLUENZA LIKE ILLNESS [None]
  - INJECTION SITE ERYTHEMA [None]
  - INJECTION SITE HAEMATOMA [None]
  - INJECTION SITE PAIN [None]
  - INJECTION SITE REACTION [None]
  - LIVER FUNCTION TEST ABNORMAL [None]
  - OSTEOPOROSIS [None]
